FAERS Safety Report 11574211 (Version 5)
Quarter: 2018Q3

REPORT INFORMATION
  Report Type: Report from Study
  Country: US (occurrence: US)
  Receive Date: 20150930
  Receipt Date: 20180904
  Transmission Date: 20181010
  Serious: Yes (Hospitalization, Other)
  Sender: FDA-Public Use
  Company Number: US-AMGEN-USASP2015096691

PATIENT
  Age: 80 Year
  Sex: Female

DRUGS (13)
  1. MODAFINIL. [Concomitant]
     Active Substance: MODAFINIL
     Indication: NARCOLEPSY
     Dosage: UNK UNK, BID
  2. FOLIC ACID. [Concomitant]
     Active Substance: FOLIC ACID
     Dosage: UNK, TWO PER DAY
  3. TRAZODONE [Concomitant]
     Active Substance: TRAZODONE HYDROCHLORIDE
     Dosage: UNK
  4. AMLODIPINE BESYLATE. [Concomitant]
     Active Substance: AMLODIPINE BESYLATE
     Dosage: 5 MG, QD (AT NIGHT)
  5. ENBREL [Suspect]
     Active Substance: ETANERCEPT
     Indication: RHEUMATOID ARTHRITIS
     Dosage: 50 MG, WEEKLY
     Route: 065
  6. SERTRALINE [Concomitant]
     Active Substance: SERTRALINE HYDROCHLORIDE
     Dosage: 50 MG, QD
  7. LIDOCAINE. [Concomitant]
     Active Substance: LIDOCAINE
     Dosage: UNK, PATCH
  8. PRAVASTATIN. [Concomitant]
     Active Substance: PRAVASTATIN
     Dosage: 20 MG, QD
  9. METOPROLOL TARTRATE. [Concomitant]
     Active Substance: METOPROLOL TARTRATE
     Dosage: 25 MG, QD
  10. ASPIRIN. [Concomitant]
     Active Substance: ASPIRIN
     Dosage: UNK
  11. LEVOTHYROXINE. [Concomitant]
     Active Substance: LEVOTHYROXINE
     Dosage: 50 MG, UNK
  12. RESTASIS [Concomitant]
     Active Substance: CYCLOSPORINE
     Dosage: UNK, IN THE AM AND PM
  13. PANTOPRAZOLE [Concomitant]
     Active Substance: PANTOPRAZOLE
     Dosage: UNK

REACTIONS (11)
  - Melanocytic naevus [Unknown]
  - Asthenia [Unknown]
  - Gait disturbance [Unknown]
  - Ulcer [Not Recovered/Not Resolved]
  - Dermatitis [Recovering/Resolving]
  - Sjogren^s syndrome [Unknown]
  - Insomnia [Unknown]
  - Weight increased [Unknown]
  - Musculoskeletal pain [Unknown]
  - Narcolepsy [Unknown]
  - Haemoglobin abnormal [Unknown]

NARRATIVE: CASE EVENT DATE: 2015
